FAERS Safety Report 14623379 (Version 2)
Quarter: 2018Q1

REPORT INFORMATION
  Report Type: Report from Study
  Country: None (occurrence: US)
  Receive Date: 20180312
  Receipt Date: 20180319
  Transmission Date: 20180509
  Serious: Yes (Other)
  Sender: FDA-Public Use
  Company Number: US-ABBVIE-18K-163-2279097-00

PATIENT
  Age: 44 Year
  Sex: Female
  Weight: 84.44 kg

DRUGS (1)
  1. HUMIRA [Suspect]
     Active Substance: ADALIMUMAB
     Indication: PSORIASIS
     Route: 058
     Dates: start: 201704, end: 20180215

REACTIONS (4)
  - Arthritis [Recovered/Resolved]
  - Musculoskeletal pain [Recovering/Resolving]
  - Rotator cuff syndrome [Recovered/Resolved]
  - Exostosis [Recovered/Resolved]

NARRATIVE: CASE EVENT DATE: 201710
